FAERS Safety Report 22279687 (Version 1)
Quarter: 2023Q2

REPORT INFORMATION
  Report Type: Spontaneous
  Country: US (occurrence: US)
  Receive Date: 20230503
  Receipt Date: 20230503
  Transmission Date: 20230722
  Serious: No
  Sender: FDA-Public Use
  Company Number: US-INCYTE CORPORATION-2023IN004281

PATIENT

DRUGS (1)
  1. JAKAFI [Suspect]
     Active Substance: RUXOLITINIB
     Indication: Myelofibrosis
     Dosage: 10 MILLIGRAM, BID (TAKE 1 TABLET BY MOUTH EVERY MORNING AND EVERY NIGHT AT BEDTIME)
     Route: 048
     Dates: start: 20200701

REACTIONS (1)
  - Fatigue [Not Recovered/Not Resolved]
